FAERS Safety Report 20533837 (Version 1)
Quarter: 2022Q1

REPORT INFORMATION
  Report Type: Spontaneous
  Country: US (occurrence: US)
  Receive Date: 20220301
  Receipt Date: 20220301
  Transmission Date: 20220423
  Serious: Yes (Other)
  Sender: FDA-Public Use
  Company Number: US-GILEAD-2022-0571686

PATIENT
  Age: 74 Year
  Sex: Male

DRUGS (2)
  1. BIKTARVY [Suspect]
     Active Substance: BICTEGRAVIR SODIUM\EMTRICITABINE\TENOFOVIR ALAFENAMIDE FUMARATE
     Indication: Renal cancer
     Dosage: 50/200/25 TABS
     Route: 065
     Dates: start: 202009
  2. METROMIN [Concomitant]
     Indication: Diabetes mellitus
     Dosage: UNK

REACTIONS (2)
  - Malignant neoplasm of unknown primary site [Not Recovered/Not Resolved]
  - Renal cancer [Not Recovered/Not Resolved]

NARRATIVE: CASE EVENT DATE: 20220109
